FAERS Safety Report 6539339-2 (Version None)
Quarter: 2010Q1

REPORT INFORMATION
  Report Type: 
  Country: None (occurrence: None)
  Receive Date: 20100115
  Receipt Date: 20100108
  Transmission Date: 20100710
  Serious: Yes (Hospitalization, Other)
  Sender: FDA-Public Use
  Company Number: PHHO2009US03921

PATIENT
  Sex: Male
  Weight: 187 kg

DRUGS (9)
  1. ALDESLEUKIN C-ALDE+INJ [Suspect]
     Indication: METASTATIC RENAL CELL CARCINOMA
     Dosage: UNK
     Route: 042
     Dates: start: 20090302
  2. ALDESLEUKIN C-ALDE+INJ [Suspect]
     Dosage: UNK
     Route: 042
     Dates: start: 20090610, end: 20090613
  3. SORAFENIB [Concomitant]
     Indication: METASTATIC RENAL CELL CARCINOMA
  4. SIMVASTATIN [Concomitant]
  5. ASPIRIN [Concomitant]
  6. METFORMIN [Concomitant]
  7. CENTRUM SILVER [Concomitant]
  8. SYNTHROID [Concomitant]
  9. PEPCID [Concomitant]

REACTIONS (15)
  - ATRIAL FIBRILLATION [None]
  - CAPILLARY LEAK SYNDROME [None]
  - CENTRAL VENOUS CATHETER REMOVAL [None]
  - DIARRHOEA [None]
  - DRY SKIN [None]
  - ELECTROLYTE IMBALANCE [None]
  - GENERALISED ERYTHEMA [None]
  - INFECTION [None]
  - INSOMNIA [None]
  - NAUSEA [None]
  - PYREXIA [None]
  - RENAL FAILURE [None]
  - STAPHYLOCOCCAL INFECTION [None]
  - TACHYCARDIA [None]
  - VENTRICULAR TACHYCARDIA [None]
